FAERS Safety Report 4807766-7 (Version None)
Quarter: 2005Q4

REPORT INFORMATION
  Report Type: 
  Country: None (occurrence: None)
  Receive Date: 20051020
  Receipt Date: 20051012
  Transmission Date: 20060501
  Serious: Yes (Other)
  Sender: FDA-Public Use
  Company Number: 2004238627US

PATIENT
  Sex: Female
  Weight: 58.9676 kg

DRUGS (2)
  1. DEPO-PROVERA [Suspect]
     Indication: CONTRACEPTION
     Dosage: (FRIST INJECTION 2ND CYCLE)
     Dates: start: 20040901, end: 20040901
  2. MULTIVITAMIN [Concomitant]

REACTIONS (15)
  - ACNE [None]
  - AMENORRHOEA [None]
  - DEPRESSION [None]
  - DISEASE RECURRENCE [None]
  - FATIGUE [None]
  - HAEMORRHAGE [None]
  - HEADACHE [None]
  - IRRITABILITY [None]
  - LETHARGY [None]
  - LOSS OF LIBIDO [None]
  - MENORRHAGIA [None]
  - MOOD ALTERED [None]
  - PREGNANCY [None]
  - SELF ESTEEM DECREASED [None]
  - SUICIDAL IDEATION [None]
